FAERS Safety Report 8199200-7 (Version None)
Quarter: 2012Q1

REPORT INFORMATION
  Report Type: 
  Country: None (occurrence: None)
  Receive Date: 20120309
  Receipt Date: 20120302
  Transmission Date: 20120608
  Serious: Yes (Other)
  Sender: FDA-Public Use
  Company Number: US-BAYER-2012-023003

PATIENT
  Age: 68 Year
  Sex: Female
  Weight: 56 kg

DRUGS (4)
  1. ASPIRIN [Concomitant]
     Indication: ISCHAEMIC HEART DISEASE PROPHYLAXIS
  2. ALKA-SELTZER PLUS COLD SPARKLING ORIGINAL [Suspect]
     Dosage: 2 DF, ONCE
     Route: 048
     Dates: start: 20120229, end: 20120229
  3. LISINOPRIL [Concomitant]
  4. VITAMIN D [Concomitant]

REACTIONS (2)
  - TINNITUS [None]
  - HEARING IMPAIRED [None]
